FAERS Safety Report 25521987 (Version 1)
Quarter: 2025Q3

REPORT INFORMATION
  Report Type: Report from Study
  Country: GB (occurrence: GB)
  Receive Date: 20250706
  Receipt Date: 20250706
  Transmission Date: 20251020
  Serious: Yes (Other)
  Sender: UCB
  Company Number: GB-UCBSA-2025040728

PATIENT
  Sex: Female

DRUGS (1)
  1. BIMEKIZUMAB [Suspect]
     Active Substance: BIMEKIZUMAB
     Indication: Psoriatic arthropathy
     Dosage: INJECT ONE PRE-FILLED PEN, EV 4 WEEKS
     Dates: start: 202410

REACTIONS (3)
  - Psoriatic arthropathy [Not Recovered/Not Resolved]
  - Therapy interrupted [Unknown]
  - Product availability issue [Unknown]

NARRATIVE: CASE EVENT DATE: 20250101
